FAERS Safety Report 21698801 (Version 4)
Quarter: 2023Q2

REPORT INFORMATION
  Report Type: Report from Study
  Country: US (occurrence: US)
  Receive Date: 20221208
  Receipt Date: 20230410
  Transmission Date: 20230721
  Serious: Yes (Other)
  Sender: FDA-Public Use
  Company Number: US-UCBSA-2022069091

PATIENT
  Sex: Male

DRUGS (14)
  1. CIMZIA [Suspect]
     Active Substance: CERTOLIZUMAB PEGOL
     Indication: Lung carcinoma cell type unspecified stage III
     Dosage: UNK
     Dates: start: 20221113, end: 20221122
  2. CIMZIA [Suspect]
     Active Substance: CERTOLIZUMAB PEGOL
     Indication: Adenosquamous cell lung cancer
  3. CISPLATIN [Suspect]
     Active Substance: CISPLATIN
     Indication: Lung carcinoma cell type unspecified stage III
     Dosage: UNK
     Dates: start: 20221122
  4. CISPLATIN [Suspect]
     Active Substance: CISPLATIN
     Indication: Adenosquamous cell lung cancer
  5. GEMCITABINE [Suspect]
     Active Substance: GEMCITABINE
     Indication: Lung carcinoma cell type unspecified stage III
     Dosage: UNK
     Dates: start: 20221113
  6. GEMCITABINE [Suspect]
     Active Substance: GEMCITABINE
     Indication: Adenosquamous cell lung cancer
  7. NIVOLUMAB [Suspect]
     Active Substance: NIVOLUMAB
     Indication: Lung carcinoma cell type unspecified stage III
     Dosage: UNK
     Dates: start: 20221113
  8. NIVOLUMAB [Suspect]
     Active Substance: NIVOLUMAB
     Indication: Adenosquamous cell lung cancer
  9. CARBOPLATIN [Suspect]
     Active Substance: CARBOPLATIN
     Indication: Adenosquamous cell lung cancer
     Dosage: UNK
     Dates: start: 20221113
  10. FLUCONAZOLE [Concomitant]
     Active Substance: FLUCONAZOLE
     Indication: Oral candidiasis
     Dosage: 400 MILLIGRAM
  11. PREDNISONE [Concomitant]
     Active Substance: PREDNISONE
     Indication: Inflammation
     Dosage: 60 MILLIGRAM IV GIVEN X 1
     Route: 042
  12. VANCOMYCIN [Concomitant]
     Active Substance: VANCOMYCIN
     Indication: Product used for unknown indication
     Dosage: 1 GRAM, 2X/DAY (BID) IVPB
  13. ZOSYN [Concomitant]
     Active Substance: PIPERACILLIN SODIUM\TAZOBACTAM SODIUM
     Indication: Product used for unknown indication
     Dosage: 4.5 GRAM IVPB
  14. LINEZOLID [Concomitant]
     Active Substance: LINEZOLID
     Indication: Product used for unknown indication
     Dosage: 600 MILLIGRAM BID X 2 WEEKS

REACTIONS (18)
  - Blood creatinine increased [Recovering/Resolving]
  - Dyspnoea [Not Recovered/Not Resolved]
  - Urinary tract obstruction [Unknown]
  - Acute kidney injury [Not Recovered/Not Resolved]
  - Oropharyngeal pain [Not Recovered/Not Resolved]
  - Productive cough [Not Recovered/Not Resolved]
  - Dizziness [Not Recovered/Not Resolved]
  - Hypophagia [Not Recovered/Not Resolved]
  - Dysphonia [Not Recovered/Not Resolved]
  - Respiratory tract congestion [Not Recovered/Not Resolved]
  - Candida infection [Not Recovered/Not Resolved]
  - Blood urea increased [Not Recovered/Not Resolved]
  - Blood sodium decreased [Not Recovered/Not Resolved]
  - Hypovolaemia [Unknown]
  - Hyponatraemia [Unknown]
  - Product use in unapproved indication [Unknown]
  - Pleural effusion [Not Recovered/Not Resolved]
  - Pain [Not Recovered/Not Resolved]

NARRATIVE: CASE EVENT DATE: 20221101
